FAERS Safety Report 23513258 (Version 3)
Quarter: 2024Q4

REPORT INFORMATION
  Report Type: Spontaneous
  Country: US (occurrence: US)
  Receive Date: 20240212
  Receipt Date: 20241014
  Transmission Date: 20250114
  Serious: No
  Sender: NOBELPHARMA AMERICA, LLC
  Company Number: US-Nobelpharma America, LLC-NPA-2024-00188

PATIENT
  Sex: Female

DRUGS (2)
  1. HYFTOR [Suspect]
     Active Substance: SIROLIMUS
     Indication: Nail hypertrophy
     Dosage: APPLY TOPICALLY TO PAINFUL SOLES OF FEET TWICE DAILY
     Dates: start: 20230616
  2. HYFTOR [Suspect]
     Active Substance: SIROLIMUS
     Indication: Pachyonychia congenita

REACTIONS (10)
  - Application site erythema [Unknown]
  - Application site dryness [Unknown]
  - Product dose omission issue [Unknown]
  - Off label use [Unknown]
  - Erythema [Unknown]
  - Dry skin [Unknown]
  - Product dose omission issue [Unknown]
  - Product dose omission issue [Unknown]
  - Erythema [Unknown]
  - Dry skin [Unknown]
